FAERS Safety Report 10272897 (Version 1)
Quarter: 2014Q2

REPORT INFORMATION
  Report Type: Spontaneous
  Country: US (occurrence: None)
  Receive Date: 20140630
  Receipt Date: 20140630
  Transmission Date: 20141212
  Serious: Yes (Other)
  Sender: FDA-Public Use
  Company Number: 2014VER00053

PATIENT
  Sex: 0

DRUGS (1)
  1. MYORISAN 40 MG (ISOTRETINOIN)CAPSULES [Suspect]
     Indication: ACNE

REACTIONS (5)
  - Low set ears [None]
  - Encephalocele [None]
  - Skull malformation [None]
  - Umbilical cord abnormality [None]
  - Maternal drugs affecting foetus [None]
